FAERS Safety Report 6247952-5 (Version None)
Quarter: 2009Q2

REPORT INFORMATION
  Report Type: 
  Country: None (occurrence: None)
  Receive Date: 20090626
  Receipt Date: 20090622
  Transmission Date: 20091009
  Serious: No
  Sender: FDA-Public Use
  Company Number: US-B.I. PHARMACEUTICALS,INC./RIDGEFIELD-2009-BP-07643BP

PATIENT
  Sex: Male

DRUGS (8)
  1. SPIRIVA [Suspect]
     Indication: EMPHYSEMA
     Dosage: 18 MCG
     Route: 055
     Dates: start: 20090614
  2. LISINOPRIL [Concomitant]
     Indication: HYPERTENSION
     Dosage: 20 MG
     Route: 048
     Dates: start: 20090501
  3. OXYGEN [Concomitant]
     Indication: EMPHYSEMA
     Route: 055
  4. HYDROCHLOROTHIAZIDE [Concomitant]
     Indication: CARDIOMEGALY
  5. THEOPHYLLINE [Concomitant]
     Indication: EMPHYSEMA
  6. ASMANEX TWISTHALER [Concomitant]
     Indication: EMPHYSEMA
  7. ASPIRIN [Concomitant]
     Indication: PROPHYLAXIS
  8. ASCORBIC ACID [Concomitant]
     Indication: PROPHYLAXIS

REACTIONS (1)
  - DRUG INEFFECTIVE [None]
